FAERS Safety Report 11966395 (Version 1)
Quarter: 2016Q1

REPORT INFORMATION
  Report Type: Spontaneous
  Country: GB (occurrence: GB)
  Receive Date: 20160127
  Receipt Date: 20160127
  Transmission Date: 20160526
  Serious: Yes (Disabling, Other)
  Sender: FDA-Public Use
  Company Number: GB-TEVA-627856ACC

PATIENT
  Sex: Female

DRUGS (2)
  1. LOSARTAN. [Suspect]
     Active Substance: LOSARTAN
     Route: 065
  2. LOSARTAN. [Suspect]
     Active Substance: LOSARTAN
     Dosage: 100 MILLIGRAM DAILY; DOSAGE TAKEN AS 50MG MORNING, 25MG LUNCHTIME, 25MG EARLY EVENING
     Route: 065

REACTIONS (3)
  - Drug ineffective [Unknown]
  - Therapy change [Unknown]
  - Deafness [Unknown]
